FAERS Safety Report 17558207 (Version 1)
Quarter: 2020Q1

REPORT INFORMATION
  Report Type: Spontaneous
  Country: US (occurrence: US)
  Receive Date: 20200318
  Receipt Date: 20200318
  Transmission Date: 20200409
  Serious: No
  Sender: FDA-Public Use
  Company Number: US-ENDO PHARMACEUTICALS INC-2019-110965

PATIENT
  Sex: Male
  Weight: 72.56 kg

DRUGS (1)
  1. XIAFLEX [Suspect]
     Active Substance: COLLAGENASE CLOSTRIDIUM HISTOLYTICUM
     Indication: DUPUYTREN^S CONTRACTURE
     Dosage: UNK UNKNOWN, UNKNOWN; LEFT HAND; RING FINGER AND LEFT PALM
     Route: 026

REACTIONS (2)
  - Drug ineffective [Unknown]
  - Dupuytren^s contracture [Unknown]
